FAERS Safety Report 10174594 (Version 1)
Quarter: 2014Q2

REPORT INFORMATION
  Report Type: Spontaneous
  Country: US (occurrence: US)
  Receive Date: 20140515
  Receipt Date: 20140515
  Transmission Date: 20141212
  Serious: Yes (Death, Other)
  Sender: FDA-Public Use
  Company Number: US-GLAXOSMITHKLINE-A1033435A

PATIENT
  Age: 65 Year
  Sex: Male
  Weight: 75 kg

DRUGS (1)
  1. AVANDIA [Suspect]
     Indication: DIABETES MELLITUS
     Dosage: 4MG UNKNOWN
     Route: 048

REACTIONS (7)
  - Injury [Unknown]
  - Pneumonia aspiration [Fatal]
  - Cerebrovascular accident [Unknown]
  - Atrial fibrillation [Unknown]
  - Acute respiratory failure [Unknown]
  - Myocardial infarction [Unknown]
  - Angina unstable [Unknown]
